FAERS Safety Report 23565058 (Version 1)
Quarter: 2024Q1

REPORT INFORMATION
  Report Type: Spontaneous
  Country: US (occurrence: None)
  Receive Date: 20240223
  Receipt Date: 20240223
  Transmission Date: 20240410
  Serious: Yes (Life-Threatening, Hospitalization)
  Sender: FDA-Public Use
  Company Number: None

PATIENT
  Age: 74 Year
  Sex: Male
  Weight: 65.8 kg

DRUGS (2)
  1. INFLIXIMAB [Suspect]
     Active Substance: INFLIXIMAB
     Indication: Tubulointerstitial nephritis
     Dates: start: 20231008, end: 20231219
  2. Prednisone (dose varied 20-60 mg, tapered periodically) [Concomitant]
     Dates: start: 20230815, end: 20240211

REACTIONS (2)
  - Pneumonia [None]
  - Brain abscess [None]

NARRATIVE: CASE EVENT DATE: 20240117
